FAERS Safety Report 6613311-6 (Version None)
Quarter: 2010Q1

REPORT INFORMATION
  Report Type: 
  Country: None (occurrence: None)
  Receive Date: 20100304
  Receipt Date: 20100222
  Transmission Date: 20100710
  Serious: Yes (Other)
  Sender: FDA-Public Use
  Company Number: PHEH2010US01518

PATIENT
  Sex: Female

DRUGS (1)
  1. TEKTURNA HCT [Suspect]
     Dosage: 300/25MG,  TOOK 3 TABLETS
     Route: 048
     Dates: start: 20100126, end: 20100126

REACTIONS (1)
  - ACCIDENTAL DRUG INTAKE BY CHILD [None]
